FAERS Safety Report 20638864 (Version 1)
Quarter: 2022Q1

REPORT INFORMATION
  Report Type: Spontaneous
  Country: US (occurrence: US)
  Receive Date: 20220325
  Receipt Date: 20220325
  Transmission Date: 20220424
  Serious: No
  Sender: FDA-Public Use
  Company Number: US-PFIZER INC-202200329974

PATIENT
  Age: 46 Year
  Sex: Female
  Weight: 64.399 kg

DRUGS (2)
  1. NICOTROL [Suspect]
     Active Substance: NICOTINE
     Indication: Chronic obstructive pulmonary disease
     Dosage: 1 CARTRIDGE AS NEEDED 16 TIMES A DAY
     Route: 055
  2. NICOTROL [Suspect]
     Active Substance: NICOTINE
     Indication: Smoking cessation therapy

REACTIONS (4)
  - COVID-19 [Recovering/Resolving]
  - Sinus congestion [Not Recovered/Not Resolved]
  - Feeling abnormal [Not Recovered/Not Resolved]
  - Fatigue [Not Recovered/Not Resolved]
